FAERS Safety Report 9140352 (Version 3)
Quarter: 2013Q2

REPORT INFORMATION
  Report Type: Report from Study
  Country: JP (occurrence: JP)
  Receive Date: 20130305
  Receipt Date: 20130422
  Transmission Date: 20140414
  Serious: Yes (Hospitalization)
  Sender: FDA-Public Use
  Company Number: JP-009507513-1303JPN000817

PATIENT
  Age: 67 Year
  Sex: Male
  Weight: 62 kg

DRUGS (11)
  1. JANUVIA TABLETS 50MG [Suspect]
     Indication: TYPE 2 DIABETES MELLITUS
     Dosage: 50 MG, QD
     Route: 048
     Dates: start: 20120406, end: 20130306
  2. VOGLIBOSE [Concomitant]
     Indication: TYPE 2 DIABETES MELLITUS
     Dosage: 0.9 MG, TID
     Route: 048
     Dates: start: 20110911, end: 20130306
  3. URIEF [Concomitant]
     Indication: BENIGN PROSTATIC HYPERPLASIA
     Dosage: 4 MG, BID
     Route: 048
     Dates: start: 20120705
  4. BETANIS [Concomitant]
     Indication: BENIGN PROSTATIC HYPERPLASIA
     Dosage: 50 MG, QD
     Route: 048
     Dates: start: 20121101
  5. OLMETEC [Concomitant]
     Indication: HYPERTENSION
     Dosage: 20 MG, QD
     Route: 048
     Dates: start: 20121102
  6. OLMETEC [Concomitant]
     Dosage: 10 MG, QD
     Route: 048
     Dates: start: 20111124, end: 20121101
  7. HUMALOG MIX [Concomitant]
     Indication: TYPE 2 DIABETES MELLITUS
     Dosage: 15 IU, BID
     Route: 058
     Dates: start: 20120907, end: 20121101
  8. HUMALOG MIX [Concomitant]
     Dosage: 11 IU, BID
     Route: 058
     Dates: start: 20121102, end: 20130306
  9. VESICARE [Concomitant]
     Indication: BENIGN PROSTATIC HYPERPLASIA
     Dosage: 2.5 MG, QD
     Route: 048
     Dates: start: 20120126, end: 20121031
  10. LORCAM [Concomitant]
     Indication: INTERVERTEBRAL DISC PROTRUSION
     Dosage: 12 MG, TID
     Route: 048
     Dates: start: 20120621, end: 20121029
  11. LORCAM [Concomitant]
     Dosage: 4 MG, QD
     Route: 048
     Dates: start: 20121030

REACTIONS (2)
  - Lung neoplasm malignant [Not Recovered/Not Resolved]
  - Hypertension [Recovering/Resolving]
